FAERS Safety Report 18617516 (Version 1)
Quarter: 2020Q4

REPORT INFORMATION
  Report Type: Spontaneous
  Country: GB (occurrence: GB)
  Receive Date: 20201215
  Receipt Date: 20201215
  Transmission Date: 20210114
  Serious: Yes (Life-Threatening)
  Sender: FDA-Public Use
  Company Number: GB-TEVA-2020-GB-1857375

PATIENT
  Age: 78 Year
  Sex: Female
  Weight: 69.85 kg

DRUGS (8)
  1. LISINOPRIL. [Concomitant]
     Active Substance: LISINOPRIL
  2. CLONAZEPAM. [Concomitant]
     Active Substance: CLONAZEPAM
  3. AMITRIPTYLINE [Concomitant]
     Active Substance: AMITRIPTYLINE
  4. WARFARIN [Suspect]
     Active Substance: WARFARIN
     Route: 065
  5. EFUDIX [Interacting]
     Active Substance: FLUOROURACIL
     Indication: SKIN LESION
     Dosage: APPLY FOR 3 , UNIT DOSE : 1 DOSAGE FORMS
     Route: 061
     Dates: start: 20200819, end: 20200909
  6. IVABRADINE [Concomitant]
     Active Substance: IVABRADINE
  7. OMEPRAZOLE. [Concomitant]
     Active Substance: OMEPRAZOLE
  8. DIGOXIN. [Concomitant]
     Active Substance: DIGOXIN

REACTIONS (3)
  - Drug interaction [Unknown]
  - Hair colour changes [Not Recovered/Not Resolved]
  - International normalised ratio decreased [Not Recovered/Not Resolved]

NARRATIVE: CASE EVENT DATE: 20200828
